FAERS Safety Report 4953457-1 (Version None)
Quarter: 2006Q1

REPORT INFORMATION
  Report Type: 
  Country: None (occurrence: None)
  Receive Date: 20060324
  Receipt Date: 20060302
  Transmission Date: 20060701
  Serious: Yes (Hospitalization)
  Sender: FDA-Public Use
  Company Number: 2006SE01272

PATIENT
  Age: 22 Year
  Sex: Female
  Weight: 52 kg

DRUGS (4)
  1. MARCAINE [Suspect]
     Indication: SPINAL ANAESTHESIA
     Dosage: 3.5 ML
     Route: 037
     Dates: start: 20051203, end: 20051203
  2. PYRALGINUM [Concomitant]
     Indication: ANALGESIC EFFECT
     Route: 030
  3. MIDANIUM [Concomitant]
     Indication: ANAESTHESIA
     Route: 042
     Dates: start: 20051203
  4. FENTANYL [Concomitant]
     Indication: ANALGESIC EFFECT
     Route: 037
     Dates: start: 20051203

REACTIONS (7)
  - ANAESTHETIC COMPLICATION [None]
  - DIPLEGIA [None]
  - LOSS OF CONSCIOUSNESS [None]
  - MUSCLE HAEMORRHAGE [None]
  - NERVE ROOT LESION [None]
  - PARAPARESIS [None]
  - VENTRICULAR EXTRASYSTOLES [None]
